FAERS Safety Report 12109819 (Version 2)
Quarter: 2016Q3

REPORT INFORMATION
  Report Type: Spontaneous
  Country: US (occurrence: US)
  Receive Date: 20160224
  Receipt Date: 20160831
  Transmission Date: 20161109
  Serious: No
  Sender: FDA-Public Use
  Company Number: US-ASTRAZENECA-2016SE16572

PATIENT
  Age: 1023 Month
  Sex: Male

DRUGS (2)
  1. ADVAIR HFA [Concomitant]
     Active Substance: FLUTICASONE PROPIONATE\SALMETEROL XINAFOATE
     Route: 055
  2. TUDORZA PRESSAIR [Suspect]
     Active Substance: ACLIDINIUM BROMIDE
     Dosage: 400UG,1 PUFF, TWO TIMES A DAY
     Route: 055
     Dates: start: 20160204

REACTIONS (5)
  - Device malfunction [Unknown]
  - Intentional product misuse [Unknown]
  - Headache [Unknown]
  - Overdose [Unknown]
  - Drug dose omission [Unknown]

NARRATIVE: CASE EVENT DATE: 201602
